FAERS Safety Report 11139143 (Version 1)
Quarter: 2015Q2

REPORT INFORMATION
  Report Type: Spontaneous
  Country: US (occurrence: US)
  Receive Date: 20150527
  Receipt Date: 20150527
  Transmission Date: 20150821
  Serious: Yes (Hospitalization)
  Sender: FDA-Public Use
  Company Number: US-MALLINCKRODT-T201404261

PATIENT
  Sex: Female

DRUGS (1)
  1. H.P. ACTHAR [Suspect]
     Active Substance: CORTICOTROPIN
     Indication: LUPUS NEPHRITIS
     Dosage: 80 U, BIWEEKLY
     Route: 058
     Dates: start: 20140924

REACTIONS (1)
  - Hypertension [Recovered/Resolved]
